FAERS Safety Report 5282233-8 (Version None)
Quarter: 2007Q1

REPORT INFORMATION
  Report Type: 
  Country: None (occurrence: None)
  Receive Date: 20070330
  Receipt Date: 20070320
  Transmission Date: 20070707
  Serious: Yes (Other)
  Sender: FDA-Public Use
  Company Number: US-PFIZER INC-2007022417

PATIENT
  Sex: Female
  Weight: 59 kg

DRUGS (2)
  1. CHANTIX [Suspect]
     Indication: EX-SMOKER
     Dosage: DAILY DOSE:.5MG-FREQ:DAILY
     Dates: start: 20070228, end: 20070301
  2. ACETYLSALICYLIC ACID SRT [Concomitant]
     Dosage: FREQ:AS NEEDED

REACTIONS (3)
  - DRY SKIN [None]
  - SKIN LESION [None]
  - URTICARIA [None]
